FAERS Safety Report 21103319 (Version 2)
Quarter: 2022Q3

REPORT INFORMATION
  Report Type: Spontaneous
  Country: US (occurrence: US)
  Receive Date: 20220720
  Receipt Date: 20220726
  Transmission Date: 20221027
  Serious: No
  Sender: FDA-Public Use
  Company Number: US-LUPIN PHARMACEUTICALS INC.-2022-09559

PATIENT
  Sex: Female

DRUGS (2)
  1. ALBUTEROL SULFATE [Suspect]
     Active Substance: ALBUTEROL SULFATE
     Indication: Mycotic allergy
     Dosage: 2 PUFFS AS NEEDED
     Dates: start: 20220601
  2. ALBUTEROL SULFATE [Suspect]
     Active Substance: ALBUTEROL SULFATE
     Indication: Smoke sensitivity
     Dosage: 2 PUFFS AS NEEDED

REACTIONS (2)
  - Wrong technique in device usage process [Unknown]
  - Off label use [Unknown]
